FAERS Safety Report 8786117 (Version 1)
Quarter: 2012Q4

REPORT INFORMATION
  Report Type: Report from Study
  Country: US (occurrence: US)
  Receive Date: 20120914
  Receipt Date: 20120914
  Transmission Date: 20130627
  Serious: No
  Sender: FDA-Public Use
  Company Number: US-VERTEX PHARMACEUTICAL INC.-AE-2012-011554

PATIENT
  Age: 51 Year
  Sex: Female
  Weight: 59.55 kg

DRUGS (6)
  1. INCIVEK [Suspect]
     Indication: HEPATITIS C
     Route: 048
     Dates: start: 20110603
  2. PEGASYS [Concomitant]
     Indication: HEPATITIS C
     Dates: start: 20110603
  3. COPEGUS [Concomitant]
     Indication: HEPATITIS C
     Dates: start: 20110603
  4. COPEGUS [Concomitant]
     Route: 048
     Dates: start: 20120701
  5. AMLODIPINE [Concomitant]
     Indication: HYPERTENSION
     Route: 048
  6. AMLODIPINE [Concomitant]
     Route: 048

REACTIONS (4)
  - Fatigue [Unknown]
  - Rash pruritic [Recovered/Resolved]
  - Anaemia [Unknown]
  - Pruritus [Recovered/Resolved]
